FAERS Safety Report 15391994 (Version 1)
Quarter: 2018Q3

REPORT INFORMATION
  Report Type: Spontaneous
  Country: US (occurrence: US)
  Receive Date: 20180917
  Receipt Date: 20180917
  Transmission Date: 20181010
  Serious: Yes (Other)
  Sender: FDA-Public Use
  Company Number: US-PFIZER INC-2018370719

PATIENT
  Age: 67 Year
  Sex: Female

DRUGS (7)
  1. METHOTREXATE SODIUM. [Suspect]
     Active Substance: METHOTREXATE SODIUM
     Dosage: 20 MG, WEEKLY (50 MG/2 ML? INJECT 0.8 ML)
  2. XELJANZ XR [Suspect]
     Active Substance: TOFACITINIB CITRATE
     Dosage: 11 MG, DAILY
  3. RESTASIS [Concomitant]
     Active Substance: CYCLOSPORINE
     Dosage: 1 GTT, 2X/DAY [0.05% OPHTHALMIC EMULSION]
     Route: 047
  4. CLEOCIN [CLINDAMYCIN PHOSPHATE] [Concomitant]
     Dosage: 150 MG, 3X/DAY
  5. CLEOCIN [CLINDAMYCIN PHOSPHATE] [Concomitant]
     Dosage: 600 MG, ONE HOUR BEFORE DENTAL APPOINTMENT
  6. ROMYCIN [ERYTHROMYCIN] [Concomitant]
     Dosage: 3.5 G, 2X/DAY
     Route: 047
  7. CLEOCIN [CLINDAMYCIN PHOSPHATE] [Concomitant]
     Dosage: 600 MG, UNK

REACTIONS (2)
  - Urinary tract infection [Not Recovered/Not Resolved]
  - Cellulitis [Not Recovered/Not Resolved]

NARRATIVE: CASE EVENT DATE: 20161215
